FAERS Safety Report 8629414 (Version 2)
Quarter: 2012Q4

REPORT INFORMATION
  Report Type: 
  Country: US (occurrence: US)
  Receive Date: 20120622
  Receipt Date: 20120831
  Transmission Date: 20130627
  Serious: No
  Sender: FDA-Public Use
  Company Number: US-PFIZER INC-2012147757

PATIENT
  Age: 53 Year
  Sex: Female
  Weight: 64.85 kg

DRUGS (3)
  1. ESTRING [Suspect]
     Indication: VULVOVAGINAL DRYNESS
     Dosage: 2 mg, (1 ring), every 90 day
     Route: 067
     Dates: start: 20120614
  2. ESTRING [Suspect]
     Indication: ATROPHIC VULVOVAGINITIS
  3. ESTRING [Suspect]
     Indication: VULVOVAGINAL DRYNESS

REACTIONS (4)
  - Abdominal distension [Not Recovered/Not Resolved]
  - Decreased appetite [Not Recovered/Not Resolved]
  - Abdominal pain [Unknown]
  - Back pain [Unknown]
